FAERS Safety Report 25244478 (Version 1)
Quarter: 2025Q2

REPORT INFORMATION
  Report Type: Spontaneous
  Country: US (occurrence: US)
  Receive Date: 20250428
  Receipt Date: 20250428
  Transmission Date: 20250717
  Serious: No
  Sender: ALKEM
  Company Number: US-ALKEM LABORATORIES LIMITED-US-ALKEM-2025-02722

PATIENT
  Age: 15 Year
  Sex: Male

DRUGS (7)
  1. SIROLIMUS [Suspect]
     Active Substance: SIROLIMUS
     Indication: Keratosis pilaris
     Dosage: UNK, BID (GEL) (3-MONTH COURSE)
     Route: 061
  2. SIROLIMUS [Suspect]
     Active Substance: SIROLIMUS
     Route: 061
  3. SIROLIMUS [Suspect]
     Active Substance: SIROLIMUS
     Route: 061
  4. OXYMETAZOLINE [Concomitant]
     Active Substance: OXYMETAZOLINE
     Indication: Erythema
     Route: 061
  5. OXYMETAZOLINE [Concomitant]
     Active Substance: OXYMETAZOLINE
     Indication: Dry skin
  6. TRETINOIN [Concomitant]
     Active Substance: TRETINOIN
     Indication: Erythema
     Route: 061
  7. TRETINOIN [Concomitant]
     Active Substance: TRETINOIN
     Indication: Dry skin

REACTIONS (1)
  - Off label use [Unknown]
